FAERS Safety Report 8908578 (Version 2)
Quarter: 2012Q4

REPORT INFORMATION
  Report Type: Report from Study
  Country: US (occurrence: US)
  Receive Date: 20121114
  Receipt Date: 20121217
  Transmission Date: 20130627
  Serious: No
  Sender: FDA-Public Use
  Company Number: US-US-EMD SERONO, INC.-7173157

PATIENT
  Sex: Female

DRUGS (2)
  1. REBIF [Suspect]
     Indication: MULTIPLE SCLEROSIS
     Route: 058
     Dates: start: 20121003
  2. REBIF [Suspect]
     Route: 058

REACTIONS (5)
  - Multiple sclerosis relapse [Recovered/Resolved]
  - Nausea [Unknown]
  - Balance disorder [Unknown]
  - Malaise [Unknown]
  - Rash [Unknown]
